FAERS Safety Report 5669224-X (Version None)
Quarter: 2008Q1

REPORT INFORMATION
  Report Type: 
  Country: None (occurrence: None)
  Receive Date: 20080317
  Receipt Date: 20080305
  Transmission Date: 20080703
  Serious: Yes (Hospitalization, Other)
  Sender: FDA-Public Use
  Company Number: CA-BRISTOL-MYERS SQUIBB COMPANY-13891254

PATIENT
  Age: 56 Year
  Sex: Female

DRUGS (11)
  1. ORENCIA [Suspect]
     Indication: RHEUMATOID ARTHRITIS
     Dosage: 09-AUG-07, 23-AUG-07, 03-SEP-07, 04-OCT-07.
     Route: 042
     Dates: start: 20070809, end: 20071004
  2. CELEBREX [Concomitant]
  3. PREVACID [Concomitant]
  4. GABAPENTIN [Concomitant]
  5. ALPRAZOLAM [Concomitant]
  6. EFFEXOR [Concomitant]
  7. ZOPICLONE [Concomitant]
  8. TYLENOL (CAPLET) [Concomitant]
  9. DIDROCAL [Concomitant]
  10. CIBADREX [Concomitant]
  11. METHOTREXATE [Concomitant]
     Route: 058

REACTIONS (5)
  - INTESTINAL PERFORATION [None]
  - MOUTH CYST [None]
  - ORAL DISORDER [None]
  - PERITONITIS [None]
  - TOOTH ABSCESS [None]
